FAERS Safety Report 13850140 (Version 1)
Quarter: 2017Q3

REPORT INFORMATION
  Report Type: Other
  Country: DE (occurrence: DE)
  Receive Date: 20170809
  Receipt Date: 20170809
  Transmission Date: 20171127
  Serious: No
  Sender: FDA-Public Use
  Company Number: DE-LUPIN PHARMACEUTICALS INC.-E2B_00005998

PATIENT
  Sex: Male

DRUGS (1)
  1. LEVETIRACETAM-LUPIN 500 MG TABLETS [Suspect]
     Active Substance: LEVETIRACETAM
     Indication: SEIZURE
     Dosage: 500 MG,BID,
     Route: 048
     Dates: start: 2016

REACTIONS (4)
  - Somnolence [Unknown]
  - Hypotension [Unknown]
  - Weight increased [Unknown]
  - Dizziness [Unknown]

NARRATIVE: CASE EVENT DATE: 20160318
